FAERS Safety Report 9694204 (Version 1)
Quarter: 2013Q4

REPORT INFORMATION
  Report Type: Spontaneous
  Country: US (occurrence: US)
  Receive Date: 20131118
  Receipt Date: 20131118
  Transmission Date: 20140711
  Serious: No
  Sender: FDA-Public Use
  Company Number: US-009507513-1311USA006382

PATIENT
  Age: 78 Year
  Sex: Male

DRUGS (5)
  1. JANUVIA [Suspect]
     Indication: DIABETES MELLITUS
     Dosage: 1 TABLET ONCE DAILY
     Route: 048
     Dates: start: 20091124
  2. GLIPIZIDE XL [Concomitant]
  3. BENAZEPRIL HYDROCHLORIDE (+) HYDROCHLOROTHIAZIDE [Concomitant]
  4. METFORMIN [Concomitant]
  5. FENOFIBRATE [Concomitant]

REACTIONS (1)
  - Medication residue present [Unknown]
